FAERS Safety Report 20018709 (Version 1)
Quarter: 2021Q4

REPORT INFORMATION
  Report Type: Spontaneous
  Country: US (occurrence: US)
  Receive Date: 20211101
  Receipt Date: 20211101
  Transmission Date: 20220303
  Serious: Yes (Other)
  Sender: FDA-Public Use
  Company Number: US-SUN PHARMACEUTICAL INDUSTRIES LTD-2021R1-315862

PATIENT
  Age: 86 Year
  Sex: Male

DRUGS (1)
  1. DEXAMETHASONE [Suspect]
     Active Substance: DEXAMETHASONE
     Indication: Respiratory failure
     Dosage: UNK
     Route: 065

REACTIONS (4)
  - Fungaemia [Unknown]
  - Candida infection [Unknown]
  - Mental status changes [Unknown]
  - Intracranial aneurysm [Unknown]
